FAERS Safety Report 4884360-3 (Version None)
Quarter: 2006Q1

REPORT INFORMATION
  Report Type: 
  Country: None (occurrence: None)
  Receive Date: 20060119
  Receipt Date: 20060118
  Transmission Date: 20060701
  Serious: Yes (Other)
  Sender: FDA-Public Use
  Company Number: DE-RB-2606-2006

PATIENT
  Age: 64 Year
  Sex: Female

DRUGS (9)
  1. BUPRENORPHINE HCL [Suspect]
     Indication: DRUG USE FOR UNKNOWN INDICATION
     Dosage: DOSAGE UNKNOWN
     Route: 062
  2. DIPYRONE TAB [Concomitant]
     Indication: BONE PAIN
     Dosage: DOSAGE UNKNOWN
     Route: 065
  3. DEXAMETHASONE TAB [Concomitant]
     Indication: DIURETIC THERAPY
     Dosage: DOSAGE UNKNOWN
     Route: 065
  4. METOCLOPRAMIDE HYDROCHLORIDE [Concomitant]
     Indication: NAUSEA
     Dosage: DOSAGE UNKNOWN
     Route: 065
  5. FUROSEMIDE [Concomitant]
     Indication: RETCHING
     Dosage: DOSAGE UNKNOWN
     Route: 065
  6. SODIUM PICOSULFATE [Concomitant]
     Dosage: DOSAGE UNKNOWN
     Route: 065
  7. DICLOFENAC [Concomitant]
     Dosage: DOSAGE UNKNOWN
     Route: 065
  8. HALOPERIDOL DECANOATE [Concomitant]
     Indication: BONE PAIN
     Dosage: DOSAGE UNKNOWN
     Route: 065
  9. DIMENHYDRINATE [Concomitant]
     Indication: INFLAMMATION
     Dosage: DOSAGE UNKNOWN
     Route: 065

REACTIONS (3)
  - COMA [None]
  - PETECHIAE [None]
  - RESPIRATORY FAILURE [None]
